FAERS Safety Report 5484189-1 (Version None)
Quarter: 2007Q4

REPORT INFORMATION
  Report Type: 
  Country: None (occurrence: None)
  Receive Date: 20071009
  Receipt Date: 20071009
  Transmission Date: 20080405
  Serious: No
  Sender: FDA-Public Use
  Company Number: None

PATIENT
  Age: 25 Year
  Sex: Female
  Weight: 65.7716 kg

DRUGS (3)
  1. OXYCODONE HCL [Suspect]
     Indication: INTERVERTEBRAL DISC DEGENERATION
     Dosage: 20MG BID PO
     Route: 048
     Dates: start: 20070101
  2. OXYCODONE HCL [Suspect]
     Indication: PAIN
     Dosage: 20MG BID PO
     Route: 048
     Dates: start: 20070101
  3. SOMA [Concomitant]

REACTIONS (2)
  - CONSTIPATION [None]
  - THERAPEUTIC RESPONSE UNEXPECTED WITH DRUG SUBSTITUTION [None]
